FAERS Safety Report 9702072 (Version 1)
Quarter: 2013Q4

REPORT INFORMATION
  Report Type: Spontaneous
  Country: US (occurrence: None)
  Receive Date: 20131120
  Receipt Date: 20131120
  Transmission Date: 20140711
  Serious: Yes (Other)
  Sender: FDA-Public Use
  Company Number: None

PATIENT
  Age: 61 None
  Sex: Male

DRUGS (5)
  1. CLINDAMYCIN HCL [Suspect]
     Indication: POST PROCEDURAL INFECTION
     Route: 048
     Dates: start: 20131104, end: 20131114
  2. CLINDAMYCIN HCL [Suspect]
     Indication: BACTERIAL INFECTION
     Route: 048
     Dates: start: 20131104, end: 20131114
  3. CLINDAMYCIN HCL [Suspect]
     Indication: ENDODONTIC PROCEDURE
     Route: 048
     Dates: start: 20131104, end: 20131114
  4. METFORMIN [Concomitant]
  5. GLIMEPIRIDE [Concomitant]

REACTIONS (2)
  - Drug hypersensitivity [None]
  - Pyrexia [None]
